FAERS Safety Report 14325752 (Version 1)
Quarter: 2017Q4

REPORT INFORMATION
  Report Type: Spontaneous
  Country: SG (occurrence: SG)
  Receive Date: 20171226
  Receipt Date: 20171226
  Transmission Date: 20180321
  Serious: Yes (Other)
  Sender: FDA-Public Use
  Company Number: SG-EDENBRIDGE PHARMACEUTICALS, LLC-SG-2017EDE000225

PATIENT
  Age: 54 Year
  Sex: Male

DRUGS (6)
  1. CICLOSPORIN [Suspect]
     Active Substance: CYCLOSPORINE
     Indication: APLASIA PURE RED CELL
     Dosage: 50 MG, BID
     Dates: start: 201505
  2. PREDNISOLONE SODIUM PHOSPHATE. [Suspect]
     Active Substance: PREDNISOLONE SODIUM PHOSPHATE
     Indication: APLASIA PURE RED CELL
     Dosage: 50 MG, QD
     Dates: start: 201505
  3. LEFLUNOMIDE. [Suspect]
     Active Substance: LEFLUNOMIDE
     Indication: APLASIA PURE RED CELL
     Dosage: 20 MG, QD
  4. PREDNISOLONE SODIUM PHOSPHATE. [Suspect]
     Active Substance: PREDNISOLONE SODIUM PHOSPHATE
     Dosage: 5 MG, BID
     Dates: end: 201505
  5. METHOTREXATE. [Suspect]
     Active Substance: METHOTREXATE
     Indication: APLASIA PURE RED CELL
     Dosage: 20 MG/WEEK
  6. ADALIMUMAB [Suspect]
     Active Substance: ADALIMUMAB
     Indication: APLASIA PURE RED CELL
     Dosage: 40 MG EVERY OTHER WEEK

REACTIONS (1)
  - Disseminated tuberculosis [Unknown]
